FAERS Safety Report 8442175 (Version 2)
Quarter: 2014Q4

REPORT INFORMATION
  Report Type: Spontaneous
  Country: PL (occurrence: PL)
  Receive Date: 20120305
  Receipt Date: 20141027
  Transmission Date: 20150529
  Serious: Yes (Hospitalization)
  Sender: FDA-Public Use
  Company Number: PL-MYLANLABS-2012S1004125

PATIENT

DRUGS (1)
  1. VALPROATE SEMISODIUM [Suspect]
     Active Substance: DIVALPROEX SODIUM
     Indication: SEIZURE
     Dosage: 300 MG,BID
     Route: 065

REACTIONS (3)
  - Nail discolouration [Unknown]
  - Onycholysis [Unknown]
  - Cyanosis [Unknown]
